FAERS Safety Report 12443514 (Version 2)
Quarter: 2016Q2

REPORT INFORMATION
  Report Type: Spontaneous
  Country: US (occurrence: US)
  Receive Date: 20160607
  Receipt Date: 20160617
  Transmission Date: 20160815
  Serious: Yes (Hospitalization, Other)
  Sender: FDA-Public Use
  Company Number: US-MDT-ADR-2016-01019

PATIENT
  Age: 42 Year
  Sex: Male

DRUGS (2)
  1. COMPOUNDED BACLOFEN [Suspect]
     Active Substance: BACLOFEN
     Dosage: 1516.8MCG/DAY
     Route: 037
  2. LIORESAL [Suspect]
     Active Substance: BACLOFEN
     Dosage: 13.4 MCG/DAY
     Route: 037

REACTIONS (6)
  - Muscle contracture [Unknown]
  - Pallor [Unknown]
  - Seizure [Unknown]
  - Pruritus [Unknown]
  - Muscle spasticity [Unknown]
  - Hyperhidrosis [Unknown]

NARRATIVE: CASE EVENT DATE: 201605
